FAERS Safety Report 6343039-1 (Version None)
Quarter: 2009Q3

REPORT INFORMATION
  Report Type: 
  Country: None (occurrence: None)
  Receive Date: 20090908
  Receipt Date: 20090828
  Transmission Date: 20100115
  Serious: Yes (Other)
  Sender: FDA-Public Use
  Company Number: US-ROCHE-642679

PATIENT
  Sex: Female
  Weight: 70.8 kg

DRUGS (2)
  1. BONIVA [Suspect]
     Indication: DRUG USE FOR UNKNOWN INDICATION
     Dosage: FREQUENCY: QMS; INDICATION REPORTED AS ONE A MONTH
     Route: 048
  2. BONIVA [Suspect]
     Route: 048
     Dates: start: 20080901, end: 20090101

REACTIONS (1)
  - HAEMOPTYSIS [None]
